FAERS Safety Report 7211430-7 (Version None)
Quarter: 2011Q1

REPORT INFORMATION
  Report Type: 
  Country: None (occurrence: None)
  Receive Date: 20110105
  Receipt Date: 20101229
  Transmission Date: 20110831
  Serious: Yes (Hospitalization)
  Sender: FDA-Public Use
  Company Number: JP-ABBOTT-10P-087-0682702-00

PATIENT
  Age: 73 Year
  Sex: Female

DRUGS (4)
  1. CLARITHROMYCIN [Suspect]
     Indication: HELICOBACTER INFECTION
     Route: 048
     Dates: start: 20101018, end: 20101019
  2. MICARDIS [Suspect]
     Indication: HYPERTENSION
     Route: 048
     Dates: start: 20101018, end: 20101019
  3. TAKEPRON CAPSULES [Suspect]
     Indication: HELICOBACTER INFECTION
     Route: 048
     Dates: start: 20101018, end: 20101019
  4. PASETOCIN [Suspect]
     Indication: HELICOBACTER INFECTION
     Route: 048
     Dates: start: 20101018, end: 20101019

REACTIONS (1)
  - ANAPHYLACTOID REACTION [None]
